FAERS Safety Report 19952492 (Version 3)
Quarter: 2022Q1

REPORT INFORMATION
  Report Type: Report from Study
  Country: US (occurrence: US)
  Receive Date: 20211013
  Receipt Date: 20220321
  Transmission Date: 20220423
  Serious: Yes (Other)
  Sender: FDA-Public Use
  Company Number: US-ABBVIE-21K-163-4116260-00

PATIENT
  Sex: Female

DRUGS (2)
  1. VENCLEXTA [Suspect]
     Active Substance: VENETOCLAX
     Indication: B-cell small lymphocytic lymphoma
     Route: 048
     Dates: start: 20210413, end: 2021
  2. VENCLEXTA [Suspect]
     Active Substance: VENETOCLAX
     Indication: B-cell small lymphocytic lymphoma
     Route: 048
     Dates: start: 2021

REACTIONS (10)
  - Loss of consciousness [Unknown]
  - Concussion [Unknown]
  - Road traffic accident [Unknown]
  - Illness [Unknown]
  - Immune system disorder [Unknown]
  - Head injury [Unknown]
  - Unevaluable event [Unknown]
  - Fatigue [Unknown]
  - Nausea [Unknown]
  - Unevaluable event [Unknown]

NARRATIVE: CASE EVENT DATE: 20210101
